FAERS Safety Report 5311399-6 (Version None)
Quarter: 2007Q2

REPORT INFORMATION
  Report Type: 
  Country: None (occurrence: None)
  Receive Date: 20070430
  Receipt Date: 20070423
  Transmission Date: 20071010
  Serious: Yes (Death)
  Sender: FDA-Public Use
  Company Number: AU-AVENTIS-200711976EU

PATIENT
  Age: 76 Year
  Sex: Male

DRUGS (1)
  1. RILUTEK [Suspect]
     Indication: MOTOR NEURONE DISEASE
     Route: 048
     Dates: start: 20060222, end: 20070421

REACTIONS (1)
  - DEATH [None]
